FAERS Safety Report 8471634-2 (Version None)
Quarter: 2012Q2

REPORT INFORMATION
  Report Type: 
  Country: None (occurrence: None)
  Receive Date: 20120627
  Receipt Date: 20120620
  Transmission Date: 20120825
  Serious: Yes (Death)
  Sender: FDA-Public Use
  Company Number: DE-ROCHE-1080216

PATIENT
  Sex: Female
  Weight: 47 kg

DRUGS (8)
  1. HERCEPTIN [Suspect]
     Indication: BREAST CANCER
     Dosage: LAST DOSE PRIOR TO SAE ON: 12/JUN/2012
     Route: 042
     Dates: start: 20120327, end: 20120619
  2. DIMETINDEN [Concomitant]
     Dates: start: 20120328, end: 20120612
  3. DEXAMETASON [Concomitant]
     Dates: start: 20120328, end: 20120612
  4. PACLITAXEL [Suspect]
     Indication: BREAST CANCER
     Dosage: LAST DOSE PRIOR TO SAE ON: 12/JUN/2012
     Route: 042
     Dates: start: 20120328, end: 20120619
  5. RANITIDINE HCL [Concomitant]
     Dates: start: 20120328, end: 20120612
  6. DOXORUBICIN HYDROCHLORIDE [Suspect]
     Indication: BREAST CANCER
     Dosage: LAST DOSE PRIOR TO SAE ON: 12/JUN/2012
     Route: 042
     Dates: start: 20120328, end: 20120619
  7. LAPATINIB [Suspect]
     Indication: BREAST CANCER
     Route: 048
     Dates: start: 20120328, end: 20120528
  8. AMLODIPINE [Concomitant]
     Dates: end: 20120619

REACTIONS (1)
  - CARDIAC ARREST [None]
